FAERS Safety Report 10200323 (Version 7)
Quarter: 2015Q2

REPORT INFORMATION
  Report Type: Report from Study
  Country: BR (occurrence: BR)
  Receive Date: 20140527
  Receipt Date: 20150505
  Transmission Date: 20150821
  Serious: Yes (Death, Life-Threatening)
  Sender: FDA-Public Use
  Company Number: PHHO2014BR007556

PATIENT
  Age: 79 Year
  Sex: Male
  Weight: 78.9 kg

DRUGS (6)
  1. ACZ885 [Suspect]
     Active Substance: CANAKINUMAB
     Indication: CARDIOVASCULAR EVENT PROPHYLAXIS
     Dosage: 300 MG (A), UNK
     Route: 058
     Dates: start: 20130905, end: 20140523
  2. SIMVASTATINE [Concomitant]
     Active Substance: SIMVASTATIN
     Indication: CARDIOMYOPATHY
     Dosage: 20 MG, BID
     Route: 048
     Dates: start: 2012
  3. ENALAPRIL [Concomitant]
     Active Substance: ENALAPRIL
     Indication: HYPERTENSION
     Dosage: 10 MG, BID
     Route: 048
     Dates: start: 2008
  4. OMEPRAZOL [Concomitant]
     Active Substance: OMEPRAZOLE
     Indication: ABDOMINAL DISTENSION
  5. OMEPRAZOL [Concomitant]
     Active Substance: OMEPRAZOLE
     Indication: ABDOMINAL PAIN UPPER
     Dosage: 40 MG, QD
     Route: 065
     Dates: start: 20120307
  6. AAS [Concomitant]
     Active Substance: ASPIRIN
     Indication: CARDIOMYOPATHY
     Dosage: 100 MG, QD
     Route: 048
     Dates: start: 2012

REACTIONS (1)
  - Pancreatic carcinoma metastatic [Fatal]

NARRATIVE: CASE EVENT DATE: 20140415
